FAERS Safety Report 8362558-X (Version None)
Quarter: 2012Q2

REPORT INFORMATION
  Report Type: 
  Country: None (occurrence: None)
  Receive Date: 20120516
  Receipt Date: 20120507
  Transmission Date: 20120825
  Serious: No
  Sender: FDA-Public Use
  Company Number: US-B.I. PHARMACEUTICALS,INC./RIDGEFIELD-2012-BP-10303BP

PATIENT
  Sex: Male

DRUGS (6)
  1. TIMOLOL MALEATE [Concomitant]
     Indication: GLAUCOMA
  2. LUMIGAN [Concomitant]
     Indication: GLAUCOMA
  3. SPIRIVA [Suspect]
     Indication: CHRONIC OBSTRUCTIVE PULMONARY DISEASE
     Dosage: 18 MCG
     Route: 055
     Dates: start: 20110301
  4. LOSARTAN POTASSIUM [Concomitant]
     Indication: HYPERTENSION
     Dosage: 50 MG
     Route: 048
  5. ASPIRIN [Concomitant]
     Indication: PROPHYLAXIS
     Dosage: 81 MG
     Route: 048
  6. METHOTREXATE [Concomitant]
     Indication: SKIN DISORDER
     Dosage: 1.4286 MG
     Route: 048

REACTIONS (2)
  - VISION BLURRED [None]
  - BLISTER [None]
